FAERS Safety Report 5976808-8 (Version None)
Quarter: 2008Q4

REPORT INFORMATION
  Report Type: 
  Country: None (occurrence: None)
  Receive Date: 20081201
  Receipt Date: 20081201
  Transmission Date: 20090506
  Serious: Yes (Hospitalization)
  Sender: FDA-Public Use
  Company Number: None

PATIENT
  Sex: Male
  Weight: 85.6 kg

DRUGS (8)
  1. DASATINIB - BRISTOL MYERS SQUIBB CA180-US [Suspect]
     Indication: ANAPLASTIC ASTROCYTOMA
     Dosage: 140 MG QD PO
     Route: 048
     Dates: start: 20081107
  2. ERLOTINIB GENETECH [Suspect]
     Indication: ANAPLASTIC ASTROCYTOMA
     Dosage: 450 MG QD PO
     Route: 048
     Dates: start: 20081107
  3. MINOCYCLINE HCL [Concomitant]
  4. KEPPRA [Concomitant]
  5. DILANTIN [Concomitant]
  6. RANITIDINE [Concomitant]
  7. ZOFRAN [Concomitant]
  8. IMODIUM [Concomitant]

REACTIONS (3)
  - ARTHRALGIA [None]
  - OEDEMA [None]
  - SIMPLE PARTIAL SEIZURES [None]
